FAERS Safety Report 8008317-9 (Version None)
Quarter: 2011Q4

REPORT INFORMATION
  Report Type: 
  Country: None (occurrence: None)
  Receive Date: 20111227
  Receipt Date: 20111221
  Transmission Date: 20120403
  Serious: Yes (Hospitalization)
  Sender: FDA-Public Use
  Company Number: US-B.I. PHARMACEUTICALS,INC./RIDGEFIELD-2011-BP-27842BP

PATIENT
  Age: 74 Year
  Sex: Female

DRUGS (3)
  1. PRADAXA [Suspect]
     Indication: ATRIAL FIBRILLATION
     Dosage: 300 MG
     Route: 048
     Dates: start: 20110401, end: 20110529
  2. GENTAMICIN [Suspect]
     Indication: DYSURIA
  3. GENTAMICIN [Suspect]
     Indication: FATIGUE

REACTIONS (4)
  - RENAL FAILURE ACUTE [None]
  - FATIGUE [None]
  - DYSURIA [None]
  - TOXICITY TO VARIOUS AGENTS [None]
